FAERS Safety Report 24731832 (Version 1)
Quarter: 2024Q4

REPORT INFORMATION
  Report Type: Spontaneous
  Country: US (occurrence: None)
  Receive Date: 20241212
  Receipt Date: 20241212
  Transmission Date: 20250115
  Serious: No
  Sender: Public
  Company Number: None

PATIENT
  Sex: 0

DRUGS (1)
  1. BLACK WIDOW SPIDER ANTIVENOM [Suspect]
     Active Substance: LATRODECTUS MACTANS
     Indication: Arthropod bite
     Dosage: OTHER FREQUENCY : ONCE;?
     Route: 042
     Dates: start: 20241024, end: 20241025

REACTIONS (1)
  - Product label issue [None]

NARRATIVE: CASE EVENT DATE: 20241024
